FAERS Safety Report 8481330 (Version 2)
Quarter: 2012Q4

REPORT INFORMATION
  Report Type: 
  Country: BR (occurrence: BR)
  Receive Date: 20120329
  Receipt Date: 20121010
  Transmission Date: 20130627
  Serious: Yes (Other)
  Sender: FDA-Public Use
  Company Number: BR-AMGEN-BRASP2012011592

PATIENT
  Age: 77 Year
  Sex: Female
  Weight: 60 kg

DRUGS (10)
  1. ENBREL [Suspect]
     Indication: RHEUMATOID ARTHRITIS
     Dosage: 50 mg, weekly
     Route: 058
     Dates: start: 20120206, end: 201203
  2. OMEPRAZOLE [Concomitant]
     Indication: GASTRIC DISORDER
     Dosage: UNK
  3. ARADOIS H [Concomitant]
     Indication: BLOOD PRESSURE INCREASED
     Dosage: 50 mg, UNK
  4. CLOPIDOGREL [Concomitant]
     Indication: CARDIAC DISORDER
     Dosage: UNK
  5. ASPIRINA [Concomitant]
     Indication: CARDIAC DISORDER
     Dosage: UNK
  6. ROSUVASTATIN [Concomitant]
     Indication: CARDIAC DISORDER
     Dosage: UNK
  7. NORTRIPTYLINE [Concomitant]
     Indication: SLEEP DISORDER
     Dosage: 25 mg, UNK
  8. INSULIN [Concomitant]
     Indication: DIABETES MELLITUS
     Dosage: UNK
     Dates: start: 201207
  9. ARAVA [Concomitant]
     Indication: RHEUMATOID ARTHRITIS
     Dosage: UNK
     Dates: start: 2002
  10. SELOZOK [Concomitant]
     Indication: STENT PLACEMENT
     Dosage: UNK

REACTIONS (9)
  - Immune system disorder [Unknown]
  - Wound [Recovering/Resolving]
  - Burning sensation [Recovering/Resolving]
  - Skin mass [Recovering/Resolving]
  - Erythema [Recovering/Resolving]
  - Movement disorder [Unknown]
  - Pruritus [Unknown]
  - Blister [Recovering/Resolving]
  - Herpes zoster [Unknown]
